FAERS Safety Report 24146102 (Version 1)
Quarter: 2024Q3

REPORT INFORMATION
  Report Type: Spontaneous
  Country: US (occurrence: None)
  Receive Date: 20240729
  Receipt Date: 20240729
  Transmission Date: 20241017
  Serious: No
  Sender: ASTRAZENECA
  Company Number: 2024A165609

PATIENT

DRUGS (1)
  1. TEZSPIRE [Suspect]
     Active Substance: TEZEPELUMAB-EKKO

REACTIONS (8)
  - Vomiting [Recovered/Resolved]
  - Rash [Unknown]
  - Rosacea [Unknown]
  - Urticaria [Unknown]
  - Rhinitis [Unknown]
  - Eczema [Unknown]
  - Asthma [Unknown]
  - Arthralgia [Unknown]
